FAERS Safety Report 8428669-5 (Version None)
Quarter: 2012Q2

REPORT INFORMATION
  Report Type: 
  Country: None (occurrence: None)
  Receive Date: 20120606
  Receipt Date: 20120525
  Transmission Date: 20120825
  Serious: Yes (Death)
  Sender: FDA-Public Use
  Company Number: UTC-019293

PATIENT
  Age: 54 Year
  Sex: Male
  Weight: 56.8 kg

DRUGS (4)
  1. TRACLEER [Concomitant]
  2. REMODULIN [Suspect]
     Indication: HYPERTENSION
     Dosage: 63.36 UG/KG (0.044 UG/KG, 1 IN 1 MIN), INTRAVENOUS
     Route: 042
     Dates: start: 20100710
  3. REVATIO [Concomitant]
  4. DIURETICS (DIURETICS) [Concomitant]

REACTIONS (1)
  - DEATH [None]
